FAERS Safety Report 5944512-8 (Version None)
Quarter: 2008Q4

REPORT INFORMATION
  Report Type: 
  Country: None (occurrence: None)
  Receive Date: 20081104
  Receipt Date: 20081028
  Transmission Date: 20090506
  Serious: Yes (Hospitalization)
  Sender: FDA-Public Use
  Company Number: TCI2008A05285

PATIENT
  Age: 55 Year
  Sex: Female

DRUGS (7)
  1. ACTOS [Suspect]
     Indication: TYPE 2 DIABETES MELLITUS
     Dosage: 15 MG (15 MG, 1 IN 1 D) PER ORAL
     Route: 048
     Dates: start: 20060901, end: 20080918
  2. AMARYL [Concomitant]
  3. GLUCOBAY [Concomitant]
  4. LUPRAC (TORASEMIDE) [Concomitant]
  5. MICARDIS [Concomitant]
  6. NORVASC [Concomitant]
  7. GASMOTIN (MOSAPRIDE CITRATE) [Concomitant]

REACTIONS (8)
  - ASCITES [None]
  - BLOOD GLUCOSE INCREASED [None]
  - GENERALISED OEDEMA [None]
  - GLYCOSYLATED HAEMOGLOBIN INCREASED [None]
  - OEDEMA PERIPHERAL [None]
  - PERICARDIAL EFFUSION [None]
  - PLEURAL EFFUSION [None]
  - SNORING [None]
